FAERS Safety Report 4991165-1 (Version None)
Quarter: 2006Q2

REPORT INFORMATION
  Report Type: 
  Country: None (occurrence: None)
  Receive Date: 20060428
  Receipt Date: 20060418
  Transmission Date: 20061013
  Serious: Yes (Hospitalization)
  Sender: FDA-Public Use
  Company Number: 2005140292

PATIENT
  Age: 36 Year
  Sex: Male

DRUGS (4)
  1. SOMATROPIN (SOMATROPIN) [Suspect]
     Dosage: 6 I.U.
  2. TESTOSTERONE PROPIONATE (TESTOSTERONE PROPIONATE) [Concomitant]
  3. STANOZOLOL [Concomitant]
  4. ANABOLIC STEROIDS (ANABOLIC STEROIDS) [Concomitant]

REACTIONS (7)
  - DRUG ABUSER [None]
  - DYSPHONIA [None]
  - DYSPNOEA [None]
  - GENERAL PHYSICAL HEALTH DETERIORATION [None]
  - MIDDLE INSOMNIA [None]
  - STRIDOR [None]
  - SWELLING [None]
